FAERS Safety Report 4286112-4 (Version None)
Quarter: 2004Q1

REPORT INFORMATION
  Report Type: 
  Country: None (occurrence: None)
  Receive Date: 20040120
  Receipt Date: 20030529
  Transmission Date: 20041129
  Serious: Yes (Hospitalization)
  Sender: FDA-Public Use
  Company Number: A03200201261

PATIENT
  Age: 62 Year
  Sex: Male
  Weight: 70.3075 kg

DRUGS (11)
  1. PLAVIX [Suspect]
     Indication: ARTERIAL STENT INSERTION
     Dosage: 75 MG QD - ORAL
     Route: 048
     Dates: start: 20011101
  2. ACETYLSALICYLIC ACID SRT [Concomitant]
  3. BENAZEPRIL HCL [Concomitant]
  4. PRAVASTATIN SODIUM [Concomitant]
  5. LORAZEPAM [Concomitant]
  6. TESTOSTERONE [Concomitant]
  7. SILDENAFIL CITRATE [Concomitant]
  8. FLAXSEED OIL [Concomitant]
  9. MULTI-VITAMINS [Concomitant]
  10. SELENIUM TRACE METAL ADDITIVE [Concomitant]
  11. FOLIC ACID [Concomitant]

REACTIONS (2)
  - CORONARY ARTERY DISEASE [None]
  - TONGUE HAEMATOMA [None]
